FAERS Safety Report 26026261 (Version 1)
Quarter: 2025Q4

REPORT INFORMATION
  Report Type: Spontaneous
  Country: EU (occurrence: EU)
  Receive Date: 20251111
  Receipt Date: 20251111
  Transmission Date: 20260118
  Serious: Yes (Life-Threatening)
  Sender: ROCHE
  Company Number: None

PATIENT
  Age: 82 Year
  Sex: Male
  Weight: 97 kg

DRUGS (1)
  1. RITUXIMAB [Suspect]
     Active Substance: RITUXIMAB
     Indication: Anti-myelin-associated glycoprotein associated polyneuropathy
     Dosage: 4 ADMINISTRATIONS
     Route: 042
     Dates: start: 202409, end: 20251001

REACTIONS (2)
  - Sepsis [Recovering/Resolving]
  - Epiglottitis [Recovering/Resolving]

NARRATIVE: CASE EVENT DATE: 20251011
